FAERS Safety Report 13259971 (Version 1)
Quarter: 2017Q1

REPORT INFORMATION
  Report Type: Spontaneous
  Country: US (occurrence: US)
  Receive Date: 20170222
  Receipt Date: 20170222
  Transmission Date: 20170428
  Serious: No
  Sender: FDA-Public Use
  Company Number: US-TEVA-634248USA

PATIENT
  Sex: Male

DRUGS (1)
  1. ADDERALL [Suspect]
     Active Substance: AMPHETAMINE ASPARTATE\AMPHETAMINE SULFATE\DEXTROAMPHETAMINE SACCHARATE\DEXTROAMPHETAMINE SULFATE
     Indication: ATTENTION DEFICIT/HYPERACTIVITY DISORDER
     Route: 065

REACTIONS (12)
  - Pain in extremity [Unknown]
  - Skin warm [Unknown]
  - Gait disturbance [Unknown]
  - Hypersensitivity [Unknown]
  - Erythema [Unknown]
  - Peripheral swelling [Unknown]
  - Poor peripheral circulation [Unknown]
  - Musculoskeletal stiffness [Unknown]
  - Bedridden [Unknown]
  - Oedema peripheral [Unknown]
  - Joint range of motion decreased [Unknown]
  - Drug ineffective [Unknown]
